FAERS Safety Report 7664527 (Version 5)
Quarter: 2013Q4

REPORT INFORMATION
  Report Type: Spontaneous
  Country: US (occurrence: US)
  Receive Date: 20101111
  Receipt Date: 20131122
  Transmission Date: 20140711
  Serious: Yes (Hospitalization, Other)
  Sender: FDA-Public Use
  Company Number: US-ROCHE-718681

PATIENT
  Age: 17 Year
  Sex: Male
  Weight: 113.4 kg

DRUGS (2)
  1. ACCUTANE [Suspect]
     Indication: ACNE
     Route: 065
     Dates: start: 19991008, end: 19991024
  2. ACCUTANE [Suspect]
     Dosage: DOSE INCREASED
     Route: 065
     Dates: start: 19991025, end: 20000131

REACTIONS (11)
  - Crohn^s disease [Not Recovered/Not Resolved]
  - Small intestinal obstruction [Recovered/Resolved]
  - Bipolar disorder [Unknown]
  - Gastrointestinal injury [Unknown]
  - Inflammatory bowel disease [Unknown]
  - Intestinal stenosis [Unknown]
  - Suicidal ideation [Unknown]
  - Depression [Unknown]
  - Lip dry [Unknown]
  - Dry skin [Unknown]
  - Aphthous stomatitis [Recovered/Resolved]
